FAERS Safety Report 22165560 (Version 1)
Quarter: 2023Q2

REPORT INFORMATION
  Report Type: Spontaneous
  Country: JP (occurrence: None)
  Receive Date: 20230403
  Receipt Date: 20230403
  Transmission Date: 20230722
  Serious: Yes (Life-Threatening)
  Sender: FDA-Public Use
  Company Number: 2023A076287

PATIENT
  Age: 56 Year
  Sex: Female

DRUGS (5)
  1. LYNPARZA [Suspect]
     Active Substance: OLAPARIB
     Indication: Ovarian cancer
     Dosage: DOSE UNKNOWN
     Route: 048
  2. LYNPARZA [Suspect]
     Active Substance: OLAPARIB
     Indication: Ovarian cancer
     Dosage: NUMBER OF SEPARATE DOSAGES UNKNOWN500.0MG UNKNOWN
     Route: 048
  3. LYNPARZA [Suspect]
     Active Substance: OLAPARIB
     Indication: Ovarian cancer
     Dosage: NUMBER OF SEPARATE DOSAGES UNKNOWN400.0MG UNKNOWN
     Route: 048
  4. LYNPARZA [Suspect]
     Active Substance: OLAPARIB
     Indication: Ovarian cancer
     Dosage: NUMBER OF SEPARATE DOSAGES UNKNOWN300.0MG UNKNOWN
     Route: 048
  5. BEVACIZUMAB [Concomitant]
     Active Substance: BEVACIZUMAB
     Indication: Ovarian cancer
     Dosage: DOSE UNKNOWN
     Route: 065

REACTIONS (5)
  - Anaemia [Unknown]
  - Neutrophil count decreased [Unknown]
  - Platelet count decreased [Unknown]
  - Nausea [Unknown]
  - Renal disorder [Unknown]
